FAERS Safety Report 6378872-3 (Version None)
Quarter: 2009Q3

REPORT INFORMATION
  Report Type: 
  Country: None (occurrence: None)
  Receive Date: 20090928
  Receipt Date: 20090727
  Transmission Date: 20100115
  Serious: No
  Sender: FDA-Public Use
  Company Number: US-BAYER-200928414NA

PATIENT
  Sex: Female

DRUGS (1)
  1. YAZ [Suspect]
     Indication: CONTRACEPTION
     Route: 048
     Dates: start: 20090201

REACTIONS (6)
  - ANGER [None]
  - CHEST PAIN [None]
  - DEPRESSED MOOD [None]
  - DIZZINESS [None]
  - IRRITABILITY [None]
  - MALAISE [None]
